FAERS Safety Report 18380367 (Version 1)
Quarter: 2020Q4

REPORT INFORMATION
  Report Type: Other
  Country: SG (occurrence: SG)
  Receive Date: 20201013
  Receipt Date: 20201013
  Transmission Date: 20210114
  Serious: Yes (Hospitalization, Other)
  Sender: FDA-Public Use
  Company Number: SG-ROCHE-2689954

PATIENT
  Sex: Female

DRUGS (1)
  1. AVASTIN [Suspect]
     Active Substance: BEVACIZUMAB
     Indication: COLORECTAL CANCER
     Route: 065
     Dates: start: 202006

REACTIONS (5)
  - Neoplasm [Unknown]
  - Hypoaesthesia [Unknown]
  - Spinal cord disorder [Unknown]
  - Gait disturbance [Unknown]
  - Fall [Unknown]
